FAERS Safety Report 17598580 (Version 1)
Quarter: 2020Q1

REPORT INFORMATION
  Report Type: Spontaneous
  Country: US (occurrence: US)
  Receive Date: 20200329
  Receipt Date: 20200329
  Transmission Date: 20200409
  Serious: Yes (Other)
  Sender: FDA-Public Use
  Company Number: None

PATIENT
  Age: 72 Year
  Sex: Male
  Weight: 57.6 kg

DRUGS (7)
  1. ZINC. [Concomitant]
     Active Substance: ZINC
  2. VIAGRA [Suspect]
     Active Substance: SILDENAFIL CITRATE
     Indication: ERECTILE DYSFUNCTION
     Dosage: ?          QUANTITY:1 TABLET(S);?
     Route: 048
     Dates: start: 20200328, end: 20200328
  3. MULTIVITAMINS [Concomitant]
     Active Substance: VITAMINS
  4. FISH OIL SUPPLEMENTS [Concomitant]
     Active Substance: FISH OIL
  5. MAGNESIUM [Concomitant]
     Active Substance: MAGNESIUM
  6. IRON [Concomitant]
     Active Substance: IRON
  7. DUCUSATE [Concomitant]

REACTIONS (5)
  - Post micturition dribble [None]
  - Haemorrhage [None]
  - Penis disorder [None]
  - Genital pain [None]
  - Dysuria [None]

NARRATIVE: CASE EVENT DATE: 20200328
